FAERS Safety Report 10917105 (Version 1)
Quarter: 2015Q1

REPORT INFORMATION
  Report Type: Spontaneous
  Country: GB (occurrence: None)
  Receive Date: 20150311
  Receipt Date: 20150311
  Transmission Date: 20150721
  Serious: Yes (Other)
  Sender: FDA-Public Use
  Company Number: FK201501160

PATIENT
  Age: 1 Month
  Sex: Female

DRUGS (2)
  1. SODIUM CHLORIDE (MANUFACTURER UNKNOWN) (SODIUM CHLORIDE) (SODIUM CHLORIDE) [Suspect]
     Active Substance: SODIUM CHLORIDE
     Indication: SUPPLEMENTATION THERAPY
     Dosage: INTRAVENOUS (NOT OTHERWISE SPECIFIED)
     Route: 042
  2. DEXTROSE 10% (GLUCOSE) [Concomitant]

REACTIONS (2)
  - Medication error [None]
  - Overdose [None]

NARRATIVE: CASE EVENT DATE: 20141221
